FAERS Safety Report 18078231 (Version 3)
Quarter: 2021Q2

REPORT INFORMATION
  Report Type: Report from Study
  Country: US (occurrence: US)
  Receive Date: 20200728
  Receipt Date: 20210417
  Transmission Date: 20210717
  Serious: Yes (Hospitalization)
  Sender: FDA-Public Use
  Company Number: NVSC2020US205536

PATIENT
  Sex: Female

DRUGS (2)
  1. ENTRESTO [Suspect]
     Active Substance: SACUBITRIL\VALSARTAN
     Indication: PRODUCT USED FOR UNKNOWN INDICATION
     Dosage: UNK
     Route: 065
  2. ENTRESTO [Suspect]
     Active Substance: SACUBITRIL\VALSARTAN
     Dosage: 1 DF, UNKNOWN ((49.51MG)
     Route: 065

REACTIONS (9)
  - Cardiac dysfunction [Unknown]
  - Nodule [Unknown]
  - Blood pressure abnormal [Unknown]
  - Arthropod bite [Unknown]
  - Thrombosis [Unknown]
  - Staphylococcal infection [Unknown]
  - Gastric ulcer [Unknown]
  - Infection [Unknown]
  - Parotid duct obstruction [Unknown]
